FAERS Safety Report 13738243 (Version 1)
Quarter: 2017Q3

REPORT INFORMATION
  Report Type: Spontaneous
  Country: US (occurrence: US)
  Receive Date: 20170710
  Receipt Date: 20170710
  Transmission Date: 20171127
  Serious: Yes (Other)
  Sender: FDA-Public Use
  Company Number: US-MALLINCKRODT-T201702745

PATIENT
  Age: 32 Year
  Sex: Female

DRUGS (2)
  1. PROMETHAZINE [Concomitant]
     Active Substance: PROMETHAZINE\PROMETHAZINE HYDROCHLORIDE
     Indication: PRODUCT USED FOR UNKNOWN INDICATION
     Dosage: UNK
  2. FENTANYL TRANSDERMAL SYSTEM [Suspect]
     Active Substance: FENTANYL
     Indication: PAIN
     Dosage: 75 MCG/H EVERY 72 HOURS
     Route: 062
     Dates: start: 20170621

REACTIONS (7)
  - Intestinal mass [Unknown]
  - Chills [Unknown]
  - Vomiting [Unknown]
  - Weight fluctuation [Unknown]
  - Breakthrough pain [Unknown]
  - Eating disorder [Unknown]
  - Product storage error [Unknown]
